FAERS Safety Report 19682370 (Version 1)
Quarter: 2021Q3

REPORT INFORMATION
  Report Type: Spontaneous
  Country: CN (occurrence: CN)
  Receive Date: 20210810
  Receipt Date: 20210810
  Transmission Date: 20211014
  Serious: Yes (Other)
  Sender: FDA-Public Use
  Company Number: CN-LUPIN PHARMACEUTICALS INC.-2021-14231

PATIENT
  Age: 29 Year
  Sex: Female

DRUGS (7)
  1. AZATHIOPRINE. [Suspect]
     Active Substance: AZATHIOPRINE
     Indication: CUTANEOUS VASCULITIS
     Dosage: 50 MILLIGRAM, BID
     Route: 048
     Dates: start: 201712
  2. TOFACITINIB [Concomitant]
     Active Substance: TOFACITINIB
     Indication: CUTANEOUS VASCULITIS
     Dosage: 5 MILLIGRAM, BID
     Route: 048
     Dates: start: 202004
  3. HYDROXYCHLOROQUINE [Suspect]
     Active Substance: HYDROXYCHLOROQUINE
     Indication: CUTANEOUS VASCULITIS
     Dosage: 200 MILLIGRAM, BID
     Route: 048
     Dates: start: 202004
  4. PREDNISONE. [Suspect]
     Active Substance: PREDNISONE
     Indication: CUTANEOUS VASCULITIS
     Dosage: 25 MILLIGRAM, QD
     Route: 048
     Dates: start: 202004
  5. METHOTREXATE. [Suspect]
     Active Substance: METHOTREXATE
     Indication: CUTANEOUS VASCULITIS
     Dosage: 10 MILLIGRAM (ONCE A WEEK)
     Route: 048
     Dates: start: 201507
  6. TRIPTERYGIUM WILFORDII GLYCOSIDE EXTRACT [Suspect]
     Active Substance: HERBALS
     Indication: CUTANEOUS VASCULITIS
     Dosage: 20 MILLIGRAM, TID
     Route: 048
     Dates: start: 201811
  7. COLCHICINE. [Suspect]
     Active Substance: COLCHICINE
     Indication: CUTANEOUS VASCULITIS
     Dosage: 0.1 GRAM, BID
     Route: 048
     Dates: start: 201604

REACTIONS (2)
  - Drug ineffective for unapproved indication [Unknown]
  - Off label use [None]
